FAERS Safety Report 21185022 (Version 1)
Quarter: 2022Q3

REPORT INFORMATION
  Report Type: Spontaneous
  Country: CN (occurrence: CN)
  Receive Date: 20220808
  Receipt Date: 20220808
  Transmission Date: 20221027
  Serious: Yes (Hospitalization, Other)
  Sender: FDA-Public Use
  Company Number: CN-GLAXOSMITHKLINE-CNCH2022APC027334

PATIENT

DRUGS (4)
  1. IBUPROFEN [Suspect]
     Active Substance: IBUPROFEN
     Indication: Oropharyngeal pain
     Dosage: 1 DF, BID
     Route: 048
     Dates: start: 20220712, end: 20220720
  2. IBUPROFEN [Suspect]
     Active Substance: IBUPROFEN
     Indication: Productive cough
  3. ACETAMINOPHEN\CAFFEINE\CHLORPHENIRAMINE [Suspect]
     Active Substance: ACETAMINOPHEN\CAFFEINE\CHLORPHENIRAMINE
     Indication: Oropharyngeal pain
     Dosage: 1 DF, TID
     Route: 048
     Dates: start: 20220711, end: 20220720
  4. ACETAMINOPHEN\CAFFEINE\CHLORPHENIRAMINE [Suspect]
     Active Substance: ACETAMINOPHEN\CAFFEINE\CHLORPHENIRAMINE
     Indication: Productive cough

REACTIONS (7)
  - Liver injury [Recovering/Resolving]
  - Asthenia [Recovering/Resolving]
  - Chromaturia [Recovering/Resolving]
  - Dysgeusia [Recovering/Resolving]
  - Decreased appetite [Recovering/Resolving]
  - Drug ineffective [Unknown]
  - Contraindicated product administered [Unknown]

NARRATIVE: CASE EVENT DATE: 20220720
